FAERS Safety Report 21374439 (Version 1)
Quarter: 2022Q3

REPORT INFORMATION
  Report Type: Spontaneous
  Country: US (occurrence: US)
  Receive Date: 20220926
  Receipt Date: 20220926
  Transmission Date: 20221026
  Serious: No
  Sender: FDA-Public Use
  Company Number: US-JNJFOC-20220933223

PATIENT
  Sex: Female

DRUGS (1)
  1. TYLENOL 8HR [Suspect]
     Active Substance: ACETAMINOPHEN
     Indication: Arthralgia
     Dosage: SHE TAKES 1 TABLET INITIALLY AND ANOTHER 1 TABLET AFTER 1 HOUR SHE IS TAKING IT TWICE A DAY, SHE IS
     Route: 048
     Dates: start: 20220911

REACTIONS (3)
  - Abdominal rigidity [Not Recovered/Not Resolved]
  - Incorrect dose administered [Unknown]
  - Inappropriate schedule of product administration [Unknown]

NARRATIVE: CASE EVENT DATE: 20220911
